FAERS Safety Report 8269135-X (Version None)
Quarter: 2012Q1

REPORT INFORMATION
  Report Type: 
  Country: None (occurrence: None)
  Receive Date: 20120327
  Receipt Date: 20090805
  Transmission Date: 20120608
  Serious: Yes (Other)
  Sender: FDA-Public Use
  Company Number: PHEH2009US06187

PATIENT
  Age: 86 Year
  Sex: Male
  Weight: 66.7 kg

DRUGS (1)
  1. GLEEVEC [Suspect]
     Indication: GASTROINTESTINAL STROMAL TUMOUR
     Dosage: 400 MG/DAY, ORAL
     Route: 048
     Dates: start: 20040101

REACTIONS (3)
  - LYMPHADENOPATHY [None]
  - NEOPLASM MALIGNANT [None]
  - MASS [None]
